FAERS Safety Report 20247132 (Version 3)
Quarter: 2022Q1

REPORT INFORMATION
  Report Type: Spontaneous
  Country: TW (occurrence: TW)
  Receive Date: 20211229
  Receipt Date: 20220118
  Transmission Date: 20220424
  Serious: Yes (Other)
  Sender: FDA-Public Use
  Company Number: TW-CHUGAI-2021033549

PATIENT
  Age: 52 Year
  Sex: Female

DRUGS (7)
  1. ACTEMRA [Suspect]
     Active Substance: TOCILIZUMAB
     Indication: Rheumatoid arthritis
     Dosage: 320 MILLIGRAM, ONCE/MONTH
     Route: 041
     Dates: start: 20190125, end: 20211112
  2. ACTEMRA [Suspect]
     Active Substance: TOCILIZUMAB
     Indication: Rheumatoid arthritis
     Route: 065
     Dates: start: 20160817, end: 20171013
  3. METHOTREXATE [Concomitant]
     Active Substance: METHOTREXATE
     Dosage: 2 TAB
     Route: 048
  4. FOLIC ACID [Concomitant]
     Active Substance: FOLIC ACID
     Dosage: 5MG/PTP VPP -1 TAB PO QD
     Route: 048
  5. LEVOTHYROXINE [Concomitant]
     Active Substance: LEVOTHYROXINE
     Dosage: 50 MCG 2 TAB PO QD
     Route: 048
  6. PLAQUENIL [Concomitant]
     Active Substance: HYDROXYCHLOROQUINE SULFATE
     Dosage: TAB 200 MG -1 TAB PO BID
     Route: 048
  7. BEFON [Concomitant]
     Dosage: TAB 5 MG-1 TAB PO QN
     Route: 048

REACTIONS (1)
  - Goitre [Unknown]

NARRATIVE: CASE EVENT DATE: 20211015
